FAERS Safety Report 24137692 (Version 1)
Quarter: 2024Q3

REPORT INFORMATION
  Report Type: Spontaneous
  Country: CN (occurrence: CN)
  Receive Date: 20240725
  Receipt Date: 20240725
  Transmission Date: 20241016
  Serious: Yes (Other)
  Sender: JOHNSON AND JOHNSON
  Company Number: CN-JNJFOC-20240751915

PATIENT
  Age: 59 Year
  Sex: Male
  Weight: 80 kg

DRUGS (4)
  1. TOPAMAX [Interacting]
     Active Substance: TOPIRAMATE
     Indication: Seizure
     Route: 048
     Dates: start: 20240703, end: 20240703
  2. CLONAZEPAM [Interacting]
     Active Substance: CLONAZEPAM
     Indication: Seizure
     Route: 048
     Dates: start: 20240703, end: 20240703
  3. ZOLPIDEM TARTRATE [Interacting]
     Active Substance: ZOLPIDEM TARTRATE
     Indication: Sleep disorder therapy
     Route: 048
     Dates: start: 20240702, end: 20240702
  4. ZOLPIDEM TARTRATE [Interacting]
     Active Substance: ZOLPIDEM TARTRATE
     Route: 048
     Dates: start: 20240703, end: 20240703

REACTIONS (2)
  - Hallucination [Recovered/Resolved]
  - Drug interaction [Unknown]

NARRATIVE: CASE EVENT DATE: 20240703
